FAERS Safety Report 25350282 (Version 4)
Quarter: 2025Q3

REPORT INFORMATION
  Report Type: Report from Study
  Country: US (occurrence: US)
  Receive Date: 20250523
  Receipt Date: 20250728
  Transmission Date: 20251021
  Serious: No
  Sender: SUNOVION
  Company Number: US-SUMITOMO PHARMA SWITZERLAND GMBH-2025SPA005628

PATIENT

DRUGS (14)
  1. ORGOVYX [Suspect]
     Active Substance: RELUGOLIX
     Indication: Prostate cancer
     Dosage: 360 MG, SINGLE
     Route: 048
     Dates: start: 20250430, end: 20250430
  2. ORGOVYX [Suspect]
     Active Substance: RELUGOLIX
     Dosage: 120 MG, QD
     Route: 048
     Dates: start: 20250501
  3. FARXIGA [Concomitant]
     Active Substance: DAPAGLIFLOZIN PROPANEDIOL
     Route: 065
  4. LIPITOR [Concomitant]
     Active Substance: ATORVASTATIN CALCIUM
     Route: 065
  5. LISINOPRIL [Concomitant]
     Active Substance: LISINOPRIL
     Route: 065
  6. METFORMIN HYDROCHLORIDE [Concomitant]
     Active Substance: METFORMIN HYDROCHLORIDE
     Route: 065
  7. METOPROLOL TARTRATE [Concomitant]
     Active Substance: METOPROLOL TARTRATE
     Route: 065
  8. NORVASC [Concomitant]
     Active Substance: AMLODIPINE BESYLATE
     Route: 065
  9. OZEMPIC [Concomitant]
     Active Substance: SEMAGLUTIDE
     Route: 058
  10. PROAIR HFA [Concomitant]
     Active Substance: ALBUTEROL SULFATE
     Route: 055
  11. SYMBICORT [Concomitant]
     Active Substance: BUDESONIDE\FORMOTEROL FUMARATE DIHYDRATE
     Route: 055
  12. TAMSULOSIN HYDROCHLORIDE [Concomitant]
     Active Substance: TAMSULOSIN HYDROCHLORIDE
     Route: 065
  13. ACTOS [Concomitant]
     Active Substance: PIOGLITAZONE HYDROCHLORIDE
     Route: 065
  14. MOUNJARO [Concomitant]
     Active Substance: TIRZEPATIDE
     Route: 058

REACTIONS (4)
  - Fatigue [Unknown]
  - Diarrhoea [Unknown]
  - Arthralgia [Unknown]
  - Myalgia [Unknown]
